FAERS Safety Report 5646886-4 (Version None)
Quarter: 2008Q1

REPORT INFORMATION
  Report Type: 
  Country: None (occurrence: None)
  Receive Date: 20080303
  Receipt Date: 20080222
  Transmission Date: 20080703
  Serious: Yes (Other)
  Sender: FDA-Public Use
  Company Number: GB-ALLERGAN-0800893US

PATIENT
  Sex: Male
  Weight: 88.889 kg

DRUGS (8)
  1. COMBIGAN [Suspect]
     Indication: GLAUCOMA
     Dosage: 1 GTT, QD
     Route: 047
     Dates: start: 20071001, end: 20080104
  2. GANFORT [Suspect]
     Indication: GLAUCOMA
     Dosage: 1 GTT, QD
     Route: 047
     Dates: start: 20080101
  3. VOLTAROL RETARD [Concomitant]
     Indication: OSTEOARTHRITIS
     Dosage: 100 MG, QD
  4. FML [Concomitant]
     Indication: DRUG USE FOR UNKNOWN INDICATION
     Dosage: 1 GTT, BID
     Route: 047
     Dates: start: 20071001
  5. ASCORBIC ACID [Concomitant]
  6. COD-LIVER OIL [Concomitant]
  7. SELENIUM [Concomitant]
  8. GLUCOSAMINE SULFATE [Concomitant]

REACTIONS (4)
  - FEELING COLD [None]
  - INTRAOCULAR PRESSURE INCREASED [None]
  - MUSCULAR WEAKNESS [None]
  - TINNITUS [None]
